FAERS Safety Report 7807674-3 (Version None)
Quarter: 2011Q4

REPORT INFORMATION
  Report Type: 
  Country: None (occurrence: None)
  Receive Date: 20111011
  Receipt Date: 20111006
  Transmission Date: 20120403
  Serious: Yes (Death)
  Sender: FDA-Public Use
  Company Number: US-ASTRAZENECA-2011SE60258

PATIENT
  Age: 77 Year
  Sex: Female

DRUGS (4)
  1. XELODA [Concomitant]
  2. TOPROL-XL [Suspect]
     Route: 048
  3. GEMZAR [Concomitant]
     Route: 042
  4. RHINOCORT [Suspect]
     Route: 045

REACTIONS (1)
  - PANCREATIC CARCINOMA [None]
